FAERS Safety Report 15527407 (Version 2)
Quarter: 2019Q4

REPORT INFORMATION
  Report Type: Spontaneous
  Country: US (occurrence: US)
  Receive Date: 20181018
  Receipt Date: 20191120
  Transmission Date: 20200122
  Serious: No
  Sender: FDA-Public Use
  Company Number: US-EISAI MEDICAL RESEARCH-EC-2018-046207

PATIENT
  Age: 13 Year
  Sex: Female

DRUGS (5)
  1. BANZEL [Suspect]
     Active Substance: RUFINAMIDE
     Route: 048
     Dates: start: 201811, end: 201903
  2. BANZEL [Suspect]
     Active Substance: RUFINAMIDE
     Dosage: DOSE TITRATED DOWN (DOSE AND FREQUENCY UNKNOWN)
     Route: 048
     Dates: start: 20191107
  3. BANZEL [Suspect]
     Active Substance: RUFINAMIDE
     Dates: start: 201909, end: 20191106
  4. BANZEL [Suspect]
     Active Substance: RUFINAMIDE
     Indication: SEIZURE
     Dosage: DOSE AND FREQUENCY UNKNOWN
     Route: 048
     Dates: start: 2018, end: 201811
  5. BANZEL [Suspect]
     Active Substance: RUFINAMIDE
     Dosage: 400 MG ON AM, 600 MG AT NIGHT
     Route: 048
     Dates: start: 201906, end: 201909

REACTIONS (10)
  - Arthralgia [Unknown]
  - Foot deformity [Not Recovered/Not Resolved]
  - Muscle twitching [Unknown]
  - Psychomotor hyperactivity [Unknown]
  - Tic [Unknown]
  - Aggression [Unknown]
  - Intentional self-injury [Unknown]
  - Hair texture abnormal [Not Recovered/Not Resolved]
  - Gait disturbance [Unknown]
  - General physical condition abnormal [Unknown]

NARRATIVE: CASE EVENT DATE: 2018
